FAERS Safety Report 26004703 (Version 1)
Quarter: 2025Q4

REPORT INFORMATION
  Report Type: Spontaneous
  Country: US (occurrence: US)
  Receive Date: 20251106
  Receipt Date: 20251106
  Transmission Date: 20260117
  Serious: Yes (Hospitalization, Congenital Anomaly)
  Sender: NOSTRUM PHARMACEUTICALS LLC
  Company Number: US-NP-2025-105534-LIT-71

PATIENT
  Sex: Male

DRUGS (8)
  1. VENLAFAXINE [Suspect]
     Active Substance: VENLAFAXINE HYDROCHLORIDE
     Route: 064
  2. MYCOPHENOLATE MOFETIL [Suspect]
     Active Substance: MYCOPHENOLATE MOFETIL
     Route: 064
  3. TACROLIMUS [Concomitant]
     Active Substance: TACROLIMUS
     Route: 064
  4. AZATHIOPRINE [Concomitant]
     Active Substance: AZATHIOPRINE
     Route: 064
  5. RIVAROXABAN [Concomitant]
     Active Substance: RIVAROXABAN
     Route: 064
  6. ENOXAPARIN [Concomitant]
     Active Substance: ENOXAPARIN
     Route: 064
  7. LISINOPRIL [Concomitant]
     Active Substance: LISINOPRIL
     Route: 064
  8. ATORVASTATIN [Concomitant]
     Active Substance: ATORVASTATIN
     Route: 064

REACTIONS (3)
  - Foetal exposure during pregnancy [Recovered/Resolved]
  - Neonatal pulmonary hypertension [Recovered/Resolved]
  - Atrial septal defect [Recovered/Resolved]
